FAERS Safety Report 12723856 (Version 2)
Quarter: 2016Q4

REPORT INFORMATION
  Report Type: Spontaneous
  Country: US (occurrence: US)
  Receive Date: 20160908
  Receipt Date: 20161012
  Transmission Date: 20170207
  Serious: Yes (Other)
  Sender: FDA-Public Use
  Company Number: US-TEVA-689489USA

PATIENT
  Age: 41 Year
  Sex: Male

DRUGS (1)
  1. COPAXONE [Suspect]
     Active Substance: GLATIRAMER ACETATE
     Route: 065

REACTIONS (5)
  - Vision blurred [Unknown]
  - Central nervous system lesion [Unknown]
  - Drug ineffective [Unknown]
  - Multiple sclerosis relapse [Unknown]
  - Diplopia [Unknown]

NARRATIVE: CASE EVENT DATE: 20160803
